FAERS Safety Report 10593379 (Version 1)
Quarter: 2014Q4

REPORT INFORMATION
  Report Type: Spontaneous
  Country: US (occurrence: US)
  Receive Date: 20141119
  Receipt Date: 20141119
  Transmission Date: 20150529
  Serious: Yes (Hospitalization, Other)
  Sender: FDA-Public Use
  Company Number: US-GLAXOSMITHKLINE-US2014GSK021164

PATIENT
  Age: 65 Year
  Sex: Female

DRUGS (11)
  1. CHOLESTEROL MEDICATION (UNKNOWN) [Concomitant]
  2. ARIMIDEX [Concomitant]
     Active Substance: ANASTROZOLE
  3. ADVAIR DISKUS [Suspect]
     Active Substance: FLUTICASONE PROPIONATE\SALMETEROL XINAFOATE
     Indication: CHRONIC OBSTRUCTIVE PULMONARY DISEASE
     Dosage: 1 PUFF(S), BID
     Route: 055
  4. ALBUTEROL INHALER [Concomitant]
     Active Substance: ALBUTEROL
  5. PANTOPRAZOLE [Concomitant]
     Active Substance: PANTOPRAZOLE SODIUM
  6. SPIRIVA [Concomitant]
     Active Substance: TIOTROPIUM BROMIDE MONOHYDRATE
  7. UNKNOWN BLOOD PRESSURE MEDICATION [Concomitant]
     Active Substance: UNSPECIFIED INGREDIENT
  8. GABAPENTIN. [Concomitant]
     Active Substance: GABAPENTIN
  9. NAPROXEN. [Concomitant]
     Active Substance: NAPROXEN
  10. ALBUTEROL. [Concomitant]
     Active Substance: ALBUTEROL
  11. METHOTREXATE [Concomitant]
     Active Substance: METHOTREXATE

REACTIONS (6)
  - Neoplasm malignant [Recovering/Resolving]
  - Rheumatoid arthritis [Recovering/Resolving]
  - Mastectomy [Unknown]
  - Traumatic lung injury [Recovering/Resolving]
  - Oxygen consumption [Recovering/Resolving]
  - Pneumonia [Recovered/Resolved]

NARRATIVE: CASE EVENT DATE: 201212
